FAERS Safety Report 4922024-8 (Version None)
Quarter: 2006Q1

REPORT INFORMATION
  Report Type: 
  Country: None (occurrence: None)
  Receive Date: 20060222
  Receipt Date: 20060222
  Transmission Date: 20060701
  Serious: Yes (Hospitalization)
  Sender: FDA-Public Use
  Company Number: None

PATIENT
  Age: 52 Year
  Sex: Male
  Weight: 91.6266 kg

DRUGS (8)
  1. SEROQUEL [Suspect]
     Indication: BIPOLAR DISORDER
     Dosage: 200 MG AM , 200 MG 2 PM 800 MG HS CHRONIC
  2. CLONAZEPAM [Concomitant]
  3. WELLBUTRIN XL [Concomitant]
  4. MIRTAZAPINE [Concomitant]
  5. DEPAKOTE ER [Concomitant]
  6. CIPRO [Concomitant]
  7. ABILIFY [Concomitant]
  8. PROVIGIL [Concomitant]

REACTIONS (10)
  - BLOOD CREATINE PHOSPHOKINASE INCREASED [None]
  - COGWHEEL RIGIDITY [None]
  - DYSTONIA [None]
  - EXTRAPYRAMIDAL DISORDER [None]
  - MUSCLE RIGIDITY [None]
  - PARKINSONISM [None]
  - PYREXIA [None]
  - SEROTONIN SYNDROME [None]
  - TARDIVE DYSKINESIA [None]
  - WHITE BLOOD CELL COUNT INCREASED [None]
